FAERS Safety Report 18668270 (Version 2)
Quarter: 2022Q4

REPORT INFORMATION
  Report Type: Report from Study
  Country: US (occurrence: US)
  Receive Date: 20201228
  Receipt Date: 20221020
  Transmission Date: 20230112
  Serious: Yes (Other)
  Sender: FDA-Public Use
  Company Number: US-ACADIA PHARMACEUTICALS INC.-ACA-2020-PIM-003891

PATIENT
  Sex: Male

DRUGS (12)
  1. NUPLAZID [Suspect]
     Active Substance: PIMAVANSERIN TARTRATE
     Indication: Parkinson^s disease
     Dosage: 20 MILLIGRAM, EVERY OTHERDAY
     Route: 048
     Dates: start: 20210529, end: 2022
  2. NUPLAZID [Suspect]
     Active Substance: PIMAVANSERIN TARTRATE
     Indication: Parkinson^s disease psychosis
     Dosage: 34 MILLIGRAM, QD
     Route: 065
     Dates: start: 202011, end: 2020
  3. NUPLAZID [Suspect]
     Active Substance: PIMAVANSERIN TARTRATE
     Indication: Hallucination
     Dosage: 34 MILLIGRAM, EVERY OTHER DAY
     Route: 065
     Dates: start: 2020
  4. NUPLAZID [Suspect]
     Active Substance: PIMAVANSERIN TARTRATE
     Indication: Delusion
  5. BRIMONIDINE [Concomitant]
     Active Substance: BRIMONIDINE TARTRATE
     Dosage: 0.2 PERCENT
     Route: 047
  6. BUPROPION HYDROCHLORIDE [Concomitant]
     Active Substance: BUPROPION HYDROCHLORIDE
     Dosage: 150 MILLIGRAM
  7. LATANOPROST [Concomitant]
     Active Substance: LATANOPROST
     Dosage: 0.005 PERCENT
  8. MEMANTINE [Concomitant]
     Active Substance: MEMANTINE
     Dosage: 5 MILLIGRAM
  9. PANTOPRAZOLE [Concomitant]
     Active Substance: PANTOPRAZOLE
     Dosage: 40 MILLIGRAM
  10. SINEMET [Concomitant]
     Active Substance: CARBIDOPA\LEVODOPA
     Dosage: 25-100 MG
  11. VITAMIN B COMPLEX WITH C [Concomitant]
     Active Substance: ASCORBIC ACID\CALCIUM PANTOTHENATE\CYANOCOBALAMIN\NIACINAMIDE\PYRIDOXINE HYDROCHLORIDE\RIBOFLAVIN\TH
  12. CHOLECALCIFEROL [Concomitant]
     Active Substance: CHOLECALCIFEROL
     Dosage: 400 UNIT

REACTIONS (7)
  - Terminal state [Unknown]
  - Inappropriate schedule of product administration [Recovered/Resolved]
  - Incorrect dose administered [Recovered/Resolved]
  - Belligerence [Unknown]
  - Inappropriate schedule of product administration [Unknown]
  - Underdose [Unknown]
  - Hallucination [Unknown]

NARRATIVE: CASE EVENT DATE: 20200101
